FAERS Safety Report 11146459 (Version 1)
Quarter: 2015Q2

REPORT INFORMATION
  Report Type: Spontaneous
  Country: ES (occurrence: None)
  Receive Date: 20150526
  Receipt Date: 20150526
  Transmission Date: 20150821
  Serious: Yes (Hospitalization)
  Sender: FDA-Public Use
  Company Number: ES-MDCO-15-00274

PATIENT
  Age: 61 Year
  Sex: Male

DRUGS (6)
  1. PRASUGREL [Concomitant]
     Active Substance: PRASUGREL
  2. VISIPAQUE [Suspect]
     Active Substance: IODIXANOL
     Indication: PERCUTANEOUS CORONARY INTERVENTION
     Dosage: NOT OTHERWISE SPECIFIED
     Route: 042
     Dates: start: 20140808, end: 20140808
  3. ANGIOX [Suspect]
     Active Substance: BIVALIRUDIN
     Indication: PERCUTANEOUS CORONARY INTERVENTION
     Dosage: NOT OTHERWISE SPECIFIED
     Route: 042
     Dates: start: 20140808, end: 20140808
  4. BISOPROLOL [Concomitant]
     Active Substance: BISOPROLOL
  5. ENALAPRIL [Concomitant]
     Active Substance: ENALAPRIL
  6. EPLERENONE. [Concomitant]
     Active Substance: EPLERENONE

REACTIONS (5)
  - Cough [None]
  - Acute kidney injury [None]
  - Contrast media reaction [None]
  - Toxic skin eruption [None]
  - Sputum discoloured [None]

NARRATIVE: CASE EVENT DATE: 20140808
